APPROVED DRUG PRODUCT: METHYLPHENIDATE HYDROCHLORIDE
Active Ingredient: METHYLPHENIDATE HYDROCHLORIDE
Strength: 18MG
Dosage Form/Route: TABLET, EXTENDED RELEASE;ORAL
Application: A214447 | Product #001 | TE Code: AB
Applicant: ALKEM LABORATORIES LTD
Approved: May 23, 2023 | RLD: No | RS: No | Type: RX